FAERS Safety Report 7950240-X (Version None)
Quarter: 2011Q4

REPORT INFORMATION
  Report Type: 
  Country: None (occurrence: None)
  Receive Date: 20111130
  Receipt Date: 20111115
  Transmission Date: 20120403
  Serious: No
  Sender: FDA-Public Use
  Company Number: JP-PFIZER INC-2011278530

PATIENT
  Age: 62 Year
  Sex: Male

DRUGS (1)
  1. CELECOXIB [Suspect]
     Dosage: 200 MG (100 MG X 2)/DAY
     Route: 048

REACTIONS (1)
  - DIZZINESS [None]
